FAERS Safety Report 10447634 (Version 2)
Quarter: 2014Q4

REPORT INFORMATION
  Report Type: Spontaneous
  Country: US (occurrence: US)
  Receive Date: 20140911
  Receipt Date: 20141203
  Transmission Date: 20150528
  Serious: Yes (Life-Threatening, Hospitalization)
  Sender: FDA-Public Use
  Company Number: US-BAYER-2014-135705

PATIENT
  Age: 21 Year
  Sex: Female
  Weight: 65.76 kg

DRUGS (3)
  1. MIRENA [Suspect]
     Active Substance: LEVONORGESTREL
     Indication: CONTRACEPTION
     Dosage: 20 MCG/24HR, CONT
     Route: 015
     Dates: start: 20091029, end: 20130124
  2. ROCEPHIN [Concomitant]
     Active Substance: CEFTRIAXONE SODIUM
  3. AZITHROMYCIN [Concomitant]
     Active Substance: AZITHROMYCIN ANHYDROUS

REACTIONS (6)
  - Menorrhagia [None]
  - Abdominal pain lower [None]
  - Device issue [None]
  - Uterine perforation [None]
  - Injury [None]
  - General physical health deterioration [None]

NARRATIVE: CASE EVENT DATE: 20091029
